FAERS Safety Report 23292496 (Version 1)
Quarter: 2023Q4

REPORT INFORMATION
  Report Type: Spontaneous
  Country: CN (occurrence: CN)
  Receive Date: 20231213
  Receipt Date: 20231213
  Transmission Date: 20240110
  Serious: Yes (Hospitalization)
  Sender: FDA-Public Use
  Company Number: CN-JNJFOC-20231222752

PATIENT
  Age: 62 Year
  Sex: Male

DRUGS (1)
  1. ACETAMINOPHEN [Suspect]
     Active Substance: ACETAMINOPHEN
     Indication: Pyrexia
     Dosage: 3 DOSES.
     Route: 065
     Dates: start: 202112

REACTIONS (6)
  - Pneumonia [Recovered/Resolved]
  - Tongue disorder [Recovered/Resolved]
  - Hepatic failure [Recovered/Resolved]
  - Dysarthria [Recovered/Resolved]
  - Tongue dry [Recovered/Resolved]
  - Stevens-Johnson syndrome [Recovered/Resolved]

NARRATIVE: CASE EVENT DATE: 20220101
